FAERS Safety Report 17176777 (Version 2)
Quarter: 2020Q1

REPORT INFORMATION
  Report Type: Report from Study
  Country: US (occurrence: US)
  Receive Date: 20191219
  Receipt Date: 20200131
  Transmission Date: 20200409
  Serious: Yes (Hospitalization)
  Sender: FDA-Public Use
  Company Number: US-SHIRE-US201943301

PATIENT
  Sex: Female

DRUGS (1)
  1. TEDUGLUTIDE [Suspect]
     Active Substance: TEDUGLUTIDE
     Indication: PRODUCT USED FOR UNKNOWN INDICATION
     Dosage: 0.127 MILLILITER, 1X/DAY:QD
     Route: 050
     Dates: start: 20191206

REACTIONS (4)
  - Abdominal pain upper [Unknown]
  - Headache [Unknown]
  - Hospitalisation [Unknown]
  - Pain [Unknown]
